FAERS Safety Report 8917135 (Version 2)
Quarter: 2013Q1

REPORT INFORMATION
  Report Type: Spontaneous
  Country: JP (occurrence: JP)
  Receive Date: 20121120
  Receipt Date: 20130213
  Transmission Date: 20140127
  Serious: Yes (Hospitalization)
  Sender: FDA-Public Use
  Company Number: PHHY2012JP104910

PATIENT
  Age: 75 Year
  Sex: Female

DRUGS (9)
  1. RIVASTIGMIN [Suspect]
     Indication: DEMENTIA ALZHEIMER^S TYPE
     Dosage: 4.5 MG, ONCE A DAY
     Route: 062
     Dates: start: 20120912, end: 20121009
  2. RIVASTIGMIN [Suspect]
     Dosage: 9 MG, ONCE A DAY
     Route: 062
     Dates: start: 20121010, end: 20121101
  3. FORTEO [Concomitant]
  4. PREDNISOLONE [Concomitant]
  5. GASTER [Concomitant]
  6. METOLATE [Concomitant]
  7. REBAMIPIDE [Concomitant]
  8. FOLIAMIN [Concomitant]
  9. FAMOGAST [Concomitant]

REACTIONS (1)
  - Epilepsy [Recovered/Resolved]
